FAERS Safety Report 9455225 (Version 2)
Quarter: 2013Q1

REPORT INFORMATION
  Report Type: Spontaneous
  Country: FR (occurrence: None)
  Receive Date: 20130328
  Receipt Date: 20130328
  Transmission Date: 20140127
  Serious: Yes (Hospitalization)
  Sender: FDA-Public Use
  Company Number: 220882

PATIENT
  Age: 74 Year
  Sex: Male

DRUGS (17)
  1. DECAN (DEXAMETHASONE SODIUM PHOSPHATE) [Concomitant]
  2. CERNEVIT (CERNEVIT) [Concomitant]
  3. PARACETAMOL (PARACETAMOL) (INJECTION) [Concomitant]
  4. VOGALENE (METOPIMAZINE) (INJECTION) [Concomitant]
  5. PERINDOPRIL (PERINDOPRIL) (4 MG) [Concomitant]
  6. FORLAX (MACROGOL) [Concomitant]
  7. INOHEP [Suspect]
     Indication: PULMONARY EMBOLISM
     Route: 058
     Dates: start: 20121215, end: 20121217
  8. ACTISKENAN (MORPHINE SULFATE) [Concomitant]
  9. ALPRAZOLAM (ALPRAZOLAM) [Concomitant]
  10. AMLODIPINE (AMLODIPINE) [Concomitant]
  11. ATENOL (ATENOL) [Concomitant]
  12. ZOPLICONE (ZOPLICONE) [Concomitant]
  13. CLOPIDOGREL (CLOPIDOGREL) [Concomitant]
  14. DUROGESIC (FENTANYL) [Concomitant]
  15. PRIMERAN (METOCLOPRAMIDE) [Concomitant]
  16. AMOCILLIN/CLAVULANIC ACID (AMOXI-CLAVULANICO) (INJECTION) [Concomitant]
  17. FUNGIZONE (AMPHOTERICIN B) (ORAL DROPS, SOLUTION) [Concomitant]

REACTIONS (4)
  - Rectal haemorrhage [None]
  - Blood pressure decreased [None]
  - Anaemia [None]
  - Gastric ulcer haemorrhage [None]
